FAERS Safety Report 6728557-6 (Version None)
Quarter: 2010Q2

REPORT INFORMATION
  Report Type: 
  Country: None (occurrence: None)
  Receive Date: 20100517
  Receipt Date: 20100505
  Transmission Date: 20101027
  Serious: Yes (Disabling, Other)
  Sender: FDA-Public Use
  Company Number: US-PFIZER INC-2010057401

PATIENT
  Sex: Male
  Weight: 138.32 kg

DRUGS (6)
  1. NEURONTIN [Suspect]
     Indication: MIGRAINE
     Dosage: UNK
     Route: 048
     Dates: start: 19900101
  2. NEURONTIN [Suspect]
     Indication: CLUSTER HEADACHE
  3. NEURONTIN [Suspect]
     Dosage: 16 ML, 3X/DAY (800MG)
     Route: 048
  4. NEURONTIN [Suspect]
  5. BEXTRA [Concomitant]
     Indication: PROCEDURAL PAIN
     Dosage: UNK
  6. CELEBREX [Concomitant]
     Indication: PROCEDURAL PAIN
     Dosage: UNK

REACTIONS (10)
  - ARRHYTHMIA [None]
  - ARTHRITIS [None]
  - BONE DISORDER [None]
  - CLUSTER HEADACHE [None]
  - DRUG INEFFECTIVE FOR UNAPPROVED INDICATION [None]
  - GASTROOESOPHAGEAL REFLUX DISEASE [None]
  - HIP SURGERY [None]
  - IMPAIRED GASTRIC EMPTYING [None]
  - MIGRAINE [None]
  - SKULL FRACTURE [None]
